FAERS Safety Report 8307474-4 (Version None)
Quarter: 2012Q2

REPORT INFORMATION
  Report Type: 
  Country: None (occurrence: None)
  Receive Date: 20120424
  Receipt Date: 20120417
  Transmission Date: 20120825
  Serious: Yes (Life-Threatening, Hospitalization, Disabling, Other)
  Sender: FDA-Public Use
  Company Number: IE-PFIZER INC-2010139329

PATIENT
  Age: 57 Year
  Sex: Female

DRUGS (20)
  1. CALCICHEW-D3 [Concomitant]
     Dosage: 2 DF, 1X/DAY
  2. TOVIAZ [Suspect]
     Indication: HYPERTONIC BLADDER
     Dosage: 4 MG, UNK
     Route: 048
  3. LANSOPRAZOLE [Concomitant]
     Dosage: 30 MG, 1X/DAY
  4. BUMETANIDE [Concomitant]
     Dosage: 1 MG, ALTERNATE DAY
     Dates: start: 20110406
  5. CYCLOSPORINE [Suspect]
     Dosage: 125 MG, 2X/DAY
  6. FOSAMAX [Concomitant]
     Dosage: 70 MG, 1X/DAY
  7. ACETYLSALICYLIC ACID [Concomitant]
     Dosage: 75 MG, 1X/DAY
  8. RAMIPRIL [Concomitant]
     Dosage: 10 MG, 1X/DAY
  9. RAMIPRIL [Concomitant]
     Dosage: 5 MG, DAILY
  10. AMLODIPINE [Concomitant]
     Dosage: 5 MG, 1X/DAY
  11. FUROSEMIDE [Concomitant]
     Dosage: 60 MG, 2X/DAY
  12. PREDNISOLONE [Concomitant]
     Dosage: 35 MG, 1X/DAY
  13. ALENDRONATE SODIUM [Concomitant]
     Dosage: 70 MG, WEEKLY
  14. LANSOPRAZOLE [Concomitant]
     Dosage: 30 MG, DAILY
  15. LERCANIDIPINE [Concomitant]
     Dosage: 10 MG, 1X/DAY
  16. NEORAL [Suspect]
     Dosage: UNK
  17. NEORAL [Suspect]
     Dosage: 125MG MANE/100MG NOCTE
     Dates: start: 20110413
  18. ATORVASTATIN [Concomitant]
     Dosage: 20 MG, 1X/DAY, NOCTE
  19. PREDNISOLONE [Concomitant]
     Dosage: 30 MG, 1X/DAY
     Dates: start: 20110406
  20. BUMETANIDE [Concomitant]
     Dosage: 1 MG, 1X/DAY

REACTIONS (23)
  - LYMPHOMA [None]
  - DYSLIPIDAEMIA [None]
  - DENTAL PLAQUE [None]
  - HEADACHE [None]
  - LETHARGY [None]
  - PULMONARY SARCOIDOSIS [None]
  - ANXIETY [None]
  - LYMPHADENOPATHY [None]
  - DYSPNOEA [None]
  - GINGIVAL PAIN [None]
  - ASTHENIA [None]
  - MUSCLE SPASMS [None]
  - NORMOCHROMIC NORMOCYTIC ANAEMIA [None]
  - HYPERTENSION [None]
  - ANTINUCLEAR ANTIBODY POSITIVE [None]
  - TREMOR [None]
  - BLOOD CREATININE INCREASED [None]
  - NEPHROTIC SYNDROME [None]
  - MOUTH ULCERATION [None]
  - TOXICITY TO VARIOUS AGENTS [None]
  - HEPATOMEGALY [None]
  - IGA NEPHROPATHY [None]
  - JOINT SWELLING [None]
